FAERS Safety Report 25231510 (Version 1)
Quarter: 2025Q2

REPORT INFORMATION
  Report Type: Spontaneous
  Country: US (occurrence: US)
  Receive Date: 20250423
  Receipt Date: 20250423
  Transmission Date: 20250716
  Serious: Yes (Other)
  Sender: ELI LILLY AND COMPANY
  Company Number: US-ELI_LILLY_AND_COMPANY-US202504012196

PATIENT
  Age: 66 Year

DRUGS (9)
  1. ZEPBOUND [Suspect]
     Active Substance: TIRZEPATIDE
     Indication: Type 2 diabetes mellitus
     Route: 058
     Dates: start: 20250405
  2. ZEPBOUND [Suspect]
     Active Substance: TIRZEPATIDE
     Indication: Type 2 diabetes mellitus
     Route: 058
     Dates: start: 20250405
  3. ZEPBOUND [Suspect]
     Active Substance: TIRZEPATIDE
     Indication: Type 2 diabetes mellitus
     Route: 058
     Dates: start: 20250405
  4. ZEPBOUND [Suspect]
     Active Substance: TIRZEPATIDE
     Indication: Type 2 diabetes mellitus
     Route: 058
     Dates: start: 20250405
  5. METOPROLOL [Concomitant]
     Active Substance: METOPROLOL
     Indication: Cardiac disorder
  6. METOPROLOL [Concomitant]
     Active Substance: METOPROLOL
     Indication: Blood pressure measurement
  7. LORATADINE [Concomitant]
     Active Substance: LORATADINE
     Indication: Hypersensitivity
  8. MEBENDAZOLE [Concomitant]
     Active Substance: MEBENDAZOLE
     Indication: Hypersensitivity
  9. ASPIRIN [Concomitant]
     Active Substance: ASPIRIN
     Indication: Hypersensitivity

REACTIONS (10)
  - Eructation [Recovered/Resolved]
  - Chest pain [Unknown]
  - Feeling abnormal [Unknown]
  - Renal pain [Not Recovered/Not Resolved]
  - Off label use [Unknown]
  - Rash [Recovering/Resolving]
  - Dizziness [Unknown]
  - Nausea [Recovered/Resolved]
  - Fatigue [Not Recovered/Not Resolved]
  - Abdominal distension [Not Recovered/Not Resolved]

NARRATIVE: CASE EVENT DATE: 20250405
